FAERS Safety Report 18118923 (Version 10)
Quarter: 2022Q1

REPORT INFORMATION
  Report Type: Spontaneous
  Country: US (occurrence: US)
  Receive Date: 20200806
  Receipt Date: 20220310
  Transmission Date: 20220423
  Serious: Yes (Hospitalization, Other)
  Sender: FDA-Public Use
  Company Number: US-PFIZER INC-2020296610

PATIENT
  Age: 70 Year
  Sex: Female

DRUGS (2)
  1. IBRANCE [Suspect]
     Active Substance: PALBOCICLIB
     Indication: Breast cancer female
     Dosage: 125 MG, CYCLIC (ONCE DAILY X 21 DAYS EVERY 28 DAYS)
     Route: 048
     Dates: start: 20200610, end: 2020
  2. IBRANCE [Suspect]
     Active Substance: PALBOCICLIB
     Dosage: 125 MG, CYCLIC (ONCE DAILY X 21 DAYS EVERY 28 DAYS)
     Route: 048
     Dates: start: 20200709

REACTIONS (14)
  - Atrioventricular block [Not Recovered/Not Resolved]
  - Choking [Unknown]
  - Pulmonary haemorrhage [Unknown]
  - Product dose omission in error [Unknown]
  - Product dose omission issue [Unknown]
  - Pharyngeal swelling [Unknown]
  - Pain in extremity [Unknown]
  - Ear infection [Unknown]
  - Sinusitis [Unknown]
  - Herpes zoster [Unknown]
  - Peripheral swelling [Not Recovered/Not Resolved]
  - Alopecia [Not Recovered/Not Resolved]
  - Peripheral swelling [Not Recovered/Not Resolved]
  - Gastric infection [Unknown]

NARRATIVE: CASE EVENT DATE: 20200101
